FAERS Safety Report 4589312-9 (Version None)
Quarter: 2005Q1

REPORT INFORMATION
  Report Type: 
  Country: None (occurrence: None)
  Receive Date: 20050223
  Receipt Date: 20050218
  Transmission Date: 20050727
  Serious: Yes (Hospitalization)
  Sender: FDA-Public Use
  Company Number: PHRM2005FR00851

PATIENT
  Age: 27 Year
  Sex: Female
  Weight: 96 kg

DRUGS (14)
  1. LEPONEX [Suspect]
     Dosage: 200 MG/DAY
     Route: 048
     Dates: start: 20040501, end: 20041221
  2. LEPONEX [Suspect]
     Dosage: 300 MG/DAY
     Route: 048
     Dates: start: 20041222, end: 20050101
  3. LEPONEX [Suspect]
     Dosage: 400 MG/DAY
     Route: 048
     Dates: start: 20050101
  4. DEPAMIDE [Suspect]
     Route: 048
     Dates: start: 20040501, end: 20040601
  5. DEPAMIDE [Suspect]
     Dosage: 900 MG/DAY
     Route: 048
     Dates: start: 20050114, end: 20050123
  6. DEPAMIDE [Suspect]
     Dosage: 1200 MG/DAY
     Route: 048
     Dates: start: 20050124
  7. VALIUM [Suspect]
     Dosage: 30 TO 50 MG/DAY
     Route: 048
     Dates: start: 20050114
  8. TEMESTA [Concomitant]
     Route: 048
     Dates: end: 20040601
  9. TEMESTA [Concomitant]
     Route: 048
     Dates: start: 20041222, end: 20050113
  10. IXEL [Concomitant]
     Route: 048
     Dates: end: 20040601
  11. LARGACTIL [Concomitant]
     Route: 065
     Dates: start: 20041222, end: 20041222
  12. LEXOMIL [Concomitant]
     Route: 048
     Dates: start: 20041222, end: 20041222
  13. IMOVANE [Concomitant]
     Route: 048
     Dates: start: 20050113, end: 20050114
  14. THERALENE [Concomitant]
     Dosage: 50 DROPS/DAY
     Route: 048
     Dates: start: 20050113, end: 20050114

REACTIONS (5)
  - AGITATION [None]
  - DRUG EXPOSURE DURING PREGNANCY [None]
  - HOSPITALISATION [None]
  - INSOMNIA [None]
  - MANIA [None]
